FAERS Safety Report 23660976 (Version 1)
Quarter: 2024Q1

REPORT INFORMATION
  Report Type: Report from Study
  Country: GB (occurrence: GB)
  Receive Date: 20240322
  Receipt Date: 20240322
  Transmission Date: 20240410
  Serious: Yes (Death, Other)
  Sender: FDA-Public Use
  Company Number: GB-CELLTRION INC.-2024GB006832

PATIENT

DRUGS (33)
  1. BEVACIZUMAB [Suspect]
     Active Substance: BEVACIZUMAB
     Indication: Lung cancer metastatic
     Dosage: 1200 MG
     Route: 065
     Dates: start: 20210811
  2. ATEZOLIZUMAB [Suspect]
     Active Substance: ATEZOLIZUMAB
     Indication: Lung cancer metastatic
     Dosage: 1200 MG EVERY 3 WEEKS, ON 13/OCT/2021, SHE RECEIVED MOST RECENT DOSE OF ATEZOLIZUMAB 1200 MG PRIOR T
     Route: 041
     Dates: start: 20210721
  3. ATEZOLIZUMAB [Suspect]
     Active Substance: ATEZOLIZUMAB
     Dosage: 1200 MG EVERY 3 WEEKS, ON 13/OCT/2021, SHE RECEIVED MOST RECENT DOSE OF ATEZOLIZUMAB 1200 MG PRIOR T
     Route: 041
     Dates: start: 20210811
  4. CARBOPLATIN [Suspect]
     Active Substance: CARBOPLATIN
     Indication: Lung cancer metastatic
     Dosage: 630 MG
     Route: 065
     Dates: start: 20210811
  5. PACLITAXEL [Suspect]
     Active Substance: PACLITAXEL
     Indication: Lung cancer metastatic
     Dosage: 300 MG
     Route: 065
     Dates: start: 20210811
  6. CALCIUM CARBONATE [Concomitant]
     Active Substance: CALCIUM CARBONATE
     Indication: Prophylaxis
     Dosage: 1 DAY
  7. ATEZOLIZUMAB [Concomitant]
     Active Substance: ATEZOLIZUMAB
     Dosage: 1200 MG
     Route: 065
  8. CARBOPLATIN [Concomitant]
     Active Substance: CARBOPLATIN
     Dosage: UNK
     Dates: start: 20220124, end: 20220310
  9. CHLORPHENIRAMINE [Concomitant]
     Active Substance: CHLORPHENIRAMINE
     Dosage: 10 MG
     Dates: start: 20210722, end: 20210722
  10. CHLORPHENIRAMINE [Concomitant]
     Active Substance: CHLORPHENIRAMINE
     Dosage: 10 MG
     Dates: start: 20210811, end: 20210811
  11. CHLORPHENIRAMINE [Concomitant]
     Active Substance: CHLORPHENIRAMINE
     Dosage: 10 MG
     Dates: start: 20210901, end: 20210901
  12. CHLORPHENIRAMINE [Concomitant]
     Active Substance: CHLORPHENIRAMINE
     Dosage: 10 MG
     Dates: start: 20210922, end: 20210922
  13. DEXAMETHASONE [Concomitant]
     Active Substance: DEXAMETHASONE
     Indication: Prophylaxis
     Dosage: 20 MG EVERY 0.33 DAY
     Dates: start: 20210721, end: 20210721
  14. DEXAMETHASONE [Concomitant]
     Active Substance: DEXAMETHASONE
     Dosage: 20 MG EVERY 0.33 DAY
     Dates: start: 20210811, end: 20210811
  15. DEXAMETHASONE [Concomitant]
     Active Substance: DEXAMETHASONE
     Dosage: 20 MG EVERY 0.33 DAY
     Dates: start: 20210901, end: 20210901
  16. DEXAMETHASONE [Concomitant]
     Active Substance: DEXAMETHASONE
     Dosage: 20 MG EVERY 0.33 DAY
     Dates: start: 20210922, end: 20210922
  17. DOMPERIDONE [Concomitant]
     Active Substance: DOMPERIDONE
     Indication: Prophylaxis
     Dosage: EVERY 0.33 DAY
     Dates: start: 20210815
  18. MODAFINIL [Concomitant]
     Active Substance: MODAFINIL
     Dosage: EVERY 0.33 DAY
  19. OMEPRAZOLE [Concomitant]
     Active Substance: OMEPRAZOLE
     Indication: Prophylaxis
     Dosage: EVERY 1 DAY
  20. PEMETREXED [Concomitant]
     Active Substance: PEMETREXED
     Dosage: UNK
     Dates: start: 20220124, end: 20220310
  21. PREGABALIN [Concomitant]
     Active Substance: PREGABALIN
     Indication: Pain
     Dosage: EVERY 1 DAY
     Dates: start: 20210921
  22. RANITIDINE [Concomitant]
     Active Substance: RANITIDINE
     Dosage: 50 MG
     Dates: start: 20210722, end: 20210722
  23. RANITIDINE [Concomitant]
     Active Substance: RANITIDINE
     Dosage: 50 MG
     Dates: start: 20210811, end: 20210811
  24. RANITIDINE [Concomitant]
     Active Substance: RANITIDINE
     Dosage: 50 MG
     Dates: start: 20210901, end: 20210901
  25. RANITIDINE [Concomitant]
     Active Substance: RANITIDINE
     Dosage: 50 MG
     Dates: start: 20210922, end: 20210922
  26. SENNA [Concomitant]
     Active Substance: SENNA LEAF\SENNOSIDES\SENNOSIDES A AND B
     Indication: Prophylaxis
     Dosage: EVERY 1 DAY
  27. CHOLECALCIFEROL [Concomitant]
     Active Substance: CHOLECALCIFEROL
     Indication: Prophylaxis
     Dosage: EVERY 1 DAY
  28. CHOLECALCIFEROL [Concomitant]
     Active Substance: CHOLECALCIFEROL
     Indication: Prophylaxis
  29. IMODIUM [Concomitant]
     Active Substance: LOPERAMIDE HYDROCHLORIDE
     Dosage: UNK
     Dates: start: 20211102
  30. METHYLPREDNISOLONE ACETATE [Concomitant]
     Active Substance: METHYLPREDNISOLONE ACETATE
     Dosage: DAILY
     Dates: start: 20211220
  31. PREDNISOLONE ACETATE [Concomitant]
     Active Substance: PREDNISOLONE ACETATE
     Dosage: DAILY
     Dates: start: 20211224
  32. METOCLOPRAMIDE [Concomitant]
     Active Substance: METOCLOPRAMIDE
     Dosage: AS REQUIRED
  33. ONDANSETRON [Concomitant]
     Active Substance: ONDANSETRON

REACTIONS (3)
  - Death [Fatal]
  - Nausea [Unknown]
  - Overdose [Unknown]

NARRATIVE: CASE EVENT DATE: 20211102
